FAERS Safety Report 8060628-7 (Version None)
Quarter: 2012Q1

REPORT INFORMATION
  Report Type: 
  Country: None (occurrence: None)
  Receive Date: 20120120
  Receipt Date: 20120117
  Transmission Date: 20120608
  Serious: Yes (Hospitalization)
  Sender: FDA-Public Use
  Company Number: AU-JNJFOC-20120106621

PATIENT
  Sex: Male

DRUGS (7)
  1. STELARA [Suspect]
     Indication: PSORIASIS
     Route: 058
     Dates: start: 20110711
  2. RENAGEL [Concomitant]
  3. STELARA [Suspect]
     Route: 058
     Dates: start: 20111003
  4. TRIFLUOPERAZINE HCL [Concomitant]
  5. STELARA [Suspect]
     Route: 058
     Dates: start: 20110808
  6. ATENOLOL [Concomitant]
  7. ARTANE [Concomitant]

REACTIONS (1)
  - RENAL TRANSPLANT [None]
